FAERS Safety Report 8287158-1 (Version None)
Quarter: 2012Q2

REPORT INFORMATION
  Report Type: 
  Country: None (occurrence: None)
  Receive Date: 20120416
  Receipt Date: 20120404
  Transmission Date: 20120825
  Serious: Yes (Death, Hospitalization)
  Sender: FDA-Public Use
  Company Number: SE-ROCHE-1057842

PATIENT
  Sex: Male

DRUGS (6)
  1. ACTIVASE [Suspect]
     Indication: CEREBRAL THROMBOSIS
     Dosage: 58.5 ML DURING 65 MINUTES
     Route: 042
     Dates: start: 20120311, end: 20120311
  2. RAMIPRIL [Concomitant]
  3. SIMVASTATIN [Concomitant]
  4. VESICARE [Concomitant]
  5. ASPIRIN AND DIPYRIDAMOLE [Concomitant]
     Dosage: 200MG/25 MG
  6. PLENDIL [Concomitant]

REACTIONS (1)
  - CEREBELLAR HAEMORRHAGE [None]
